FAERS Safety Report 8438588-6 (Version None)
Quarter: 2012Q2

REPORT INFORMATION
  Report Type: 
  Country: None (occurrence: None)
  Receive Date: 20120615
  Receipt Date: 20120612
  Transmission Date: 20120825
  Serious: No
  Sender: FDA-Public Use
  Company Number: US-PFIZER INC-2012142570

PATIENT
  Sex: Female
  Weight: 53.061 kg

DRUGS (6)
  1. VENTOLIN [Concomitant]
     Indication: ASTHMA
     Dosage: 1 PUFF,4X/DAY
  2. TENORMIN [Concomitant]
     Indication: HYPERTENSION
     Dosage: 100 MG, DAILY
  3. NORVASC [Concomitant]
     Indication: ATRIOVENTRICULAR BLOCK
     Dosage: 5 MG, DAILY
  4. TENORMIN [Concomitant]
     Indication: BLOOD CHOLESTEROL INCREASED
  5. ADVAIR DISKUS 100/50 [Concomitant]
     Indication: ASTHMA
     Dosage: FOUR PUFFS, UNK
  6. CHANTIX [Suspect]
     Indication: SMOKING CESSATION THERAPY
     Dosage: 1 MG, 2X/DAY
     Route: 048
     Dates: start: 20120605, end: 20120608

REACTIONS (9)
  - HYPOPHAGIA [None]
  - WEIGHT DECREASED [None]
  - PYREXIA [None]
  - DIZZINESS [None]
  - HEADACHE [None]
  - MYALGIA [None]
  - MALAISE [None]
  - NAUSEA [None]
  - VOMITING [None]
